FAERS Safety Report 8388617-3 (Version None)
Quarter: 2012Q2

REPORT INFORMATION
  Report Type: 
  Country: None (occurrence: None)
  Receive Date: 20120525
  Receipt Date: 20120515
  Transmission Date: 20120825
  Serious: Yes (Disabling, Other)
  Sender: FDA-Public Use
  Company Number: US-MERCK-1204USA04090

PATIENT
  Age: 43 Year
  Sex: Female
  Weight: 98 kg

DRUGS (11)
  1. FEXOFENADINE HYDROCHLORIDE [Concomitant]
     Indication: HYPERSENSITIVITY
     Route: 048
  2. MELOXICAM [Concomitant]
     Indication: INTERVERTEBRAL DISC PROTRUSION
     Route: 048
     Dates: start: 20050101
  3. LOESTRIN 24 FE [Concomitant]
     Indication: CONTRACEPTION
     Route: 048
     Dates: start: 20050101
  4. CALCIUM (UNSPECIFIED) AND VITAMIN D (UNSPECIFIED) [Concomitant]
     Route: 065
  5. VITAMINS (UNSPECIFIED) [Concomitant]
     Route: 065
  6. MELOXICAM [Concomitant]
     Route: 048
     Dates: start: 20120419
  7. ASPIRIN [Concomitant]
     Route: 048
  8. CYANOCOBALAMIN [Concomitant]
     Route: 065
  9. SINGULAIR [Suspect]
     Indication: HYPERSENSITIVITY
     Route: 048
     Dates: start: 20120218, end: 20120426
  10. OMEGA-3 MARINE TRIGLYCERIDES [Concomitant]
     Route: 048
  11. ALLERGENIC EXTRACT [Concomitant]
     Route: 060

REACTIONS (6)
  - PAIN [None]
  - MENTAL IMPAIRMENT [None]
  - MYALGIA [None]
  - RED BLOOD CELL SEDIMENTATION RATE INCREASED [None]
  - MALAISE [None]
  - BLOOD GLUCOSE INCREASED [None]
